FAERS Safety Report 6092971-5 (Version None)
Quarter: 2009Q1

REPORT INFORMATION
  Report Type: 
  Country: None (occurrence: None)
  Receive Date: 20090224
  Receipt Date: 20090211
  Transmission Date: 20090719
  Serious: Yes (Other)
  Sender: FDA-Public Use
  Company Number: US025403

PATIENT
  Age: 53 Year
  Sex: Female
  Weight: 74.3899 kg

DRUGS (8)
  1. PROVIGIL [Suspect]
     Indication: ASTHENIA
     Dosage: 200 MG QD ORAL
     Route: 048
     Dates: start: 20090119, end: 20090128
  2. PROVIGIL [Suspect]
     Indication: FATIGUE
     Dosage: 200 MG QD ORAL
     Route: 048
     Dates: start: 20090119, end: 20090128
  3. WELLBUTRIN XL [Suspect]
     Indication: ANXIETY
     Dosage: 300 MG
     Dates: start: 20060101, end: 20090129
  4. WELLBUTRIN XL [Suspect]
     Indication: DEPRESSION
     Dosage: 300 MG
     Dates: start: 20060101, end: 20090129
  5. BUSPIRONE HCL [Concomitant]
  6. BETASERON [Concomitant]
  7. DETROL LA [Concomitant]
  8. HYDROCHLOROTHIAZIDE [Concomitant]

REACTIONS (3)
  - ASTHENIA [None]
  - CONVULSION [None]
  - DRUG INTERACTION [None]
